FAERS Safety Report 14202319 (Version 6)
Quarter: 2018Q1

REPORT INFORMATION
  Report Type: Report from Study
  Country: US (occurrence: US)
  Receive Date: 20171117
  Receipt Date: 20180312
  Transmission Date: 20180508
  Serious: Yes (Death, Hospitalization, Other)
  Sender: FDA-Public Use
  Company Number: US-ACTELION-A-US2017-162595

PATIENT
  Age: 60 Year
  Sex: Female
  Weight: 52 kg

DRUGS (33)
  1. UPTRAVI [Suspect]
     Active Substance: SELEXIPAG
     Dosage: 400 MCG, BID
     Route: 048
     Dates: start: 20171123, end: 20171204
  2. REVATIO [Concomitant]
     Active Substance: SILDENAFIL CITRATE
     Dosage: 40 MG, TID
     Dates: start: 20170628
  3. REVATIO [Concomitant]
     Active Substance: SILDENAFIL CITRATE
     Dosage: 40 MG, TID
     Route: 048
  4. TYLENOL [Concomitant]
     Active Substance: ACETAMINOPHEN
  5. BUSPAR [Concomitant]
     Active Substance: BUSPIRONE HYDROCHLORIDE
     Dosage: 30 MG, UNK
  6. TOPAMAX [Concomitant]
     Active Substance: TOPIRAMATE
     Dosage: 200 MG, QPM
     Route: 048
     Dates: start: 20180212
  7. SPIRIVA [Concomitant]
     Active Substance: TIOTROPIUM BROMIDE MONOHYDRATE
     Dosage: 18 MCG, QD
     Dates: start: 20170725
  8. TRAMADOL. [Concomitant]
     Active Substance: TRAMADOL
     Dosage: UNK
     Route: 048
     Dates: start: 20171025
  9. MIRALAX [Concomitant]
     Active Substance: POLYETHYLENE GLYCOL 3350
     Dosage: 17 G, QD
     Route: 048
  10. UPTRAVI [Suspect]
     Active Substance: SELEXIPAG
     Dosage: 200 MCG, BID
     Route: 048
  11. OXYGEN. [Concomitant]
     Active Substance: OXYGEN
  12. CLARITIN [Concomitant]
     Active Substance: LORATADINE
     Dosage: 10 MG, QD
     Route: 048
     Dates: start: 20170721
  13. MULTIVITAMINUM [Concomitant]
     Dosage: UNK, QD
     Dates: start: 20170721
  14. GLUCOPHAGE [Concomitant]
     Active Substance: METFORMIN HYDROCHLORIDE
     Dosage: 500 MG, BID
     Dates: start: 20180105
  15. ALDACTONE [Suspect]
     Active Substance: SPIRONOLACTONE
     Indication: PRODUCT USED FOR UNKNOWN INDICATION
     Dosage: 25 MG, QD
     Route: 048
     Dates: start: 20171002
  16. REVATIO [Concomitant]
     Active Substance: SILDENAFIL CITRATE
     Dosage: 20 MG, TID
  17. NEURONTIN [Concomitant]
     Active Substance: GABAPENTIN
     Dosage: 300 MG, BID
     Dates: start: 20170614
  18. PRILOSEC [Concomitant]
     Active Substance: OMEPRAZOLE MAGNESIUM
     Dosage: 20 MG, QAM
     Route: 048
  19. BUMEX [Suspect]
     Active Substance: BUMETANIDE
     Dosage: 1 MG, UNK
     Route: 048
  20. METOLAZONE. [Suspect]
     Active Substance: METOLAZONE
     Indication: PRODUCT USED FOR UNKNOWN INDICATION
     Dosage: UNK
     Route: 065
     Dates: start: 20171219
  21. LIPITOR [Concomitant]
     Active Substance: ATORVASTATIN CALCIUM
     Dosage: 40 MG, QPM
     Route: 048
     Dates: start: 20170614
  22. DEPAKOTE [Concomitant]
     Active Substance: DIVALPROEX SODIUM
     Dosage: 500 MG, QPM
     Route: 048
     Dates: start: 20170614
  23. SENOKOT [Concomitant]
     Active Substance: SENNOSIDES
     Dosage: 8.6 MG, PRN
  24. BUSPAR [Concomitant]
     Active Substance: BUSPIRONE HYDROCHLORIDE
     Dosage: 45 MG, QAM
  25. UPTRAVI [Suspect]
     Active Substance: SELEXIPAG
     Indication: PULMONARY ARTERIAL HYPERTENSION
     Dosage: 600 MCG, BID
     Route: 048
     Dates: start: 20171207, end: 20180228
  26. MORPHINE [Suspect]
     Active Substance: MORPHINE
     Indication: PRODUCT USED FOR UNKNOWN INDICATION
     Dosage: 7.5 MG, Q4HRS
     Route: 065
     Dates: start: 20171208
  27. FLOVENT [Concomitant]
     Active Substance: FLUTICASONE PROPIONATE
     Dosage: 1 PUFF, BID
     Dates: start: 20170724
  28. BUMEX [Suspect]
     Active Substance: BUMETANIDE
     Indication: PRODUCT USED FOR UNKNOWN INDICATION
     Dosage: 5 MG, BID
     Route: 048
     Dates: start: 20170614
  29. ALDACTONE [Suspect]
     Active Substance: SPIRONOLACTONE
     Dosage: UNK
     Route: 048
     Dates: start: 20171002
  30. ELIQUIS [Concomitant]
     Active Substance: APIXABAN
     Dosage: 5 MG, BID
     Route: 048
     Dates: start: 20171208
  31. PROVENTIL [Concomitant]
     Active Substance: ALBUTEROL
     Dosage: 2.5 MG, Q4HRS AS NEEDED
  32. TOPAMAX [Concomitant]
     Active Substance: TOPIRAMATE
     Dosage: 200 MG, QPM
     Route: 048
  33. UPTRAVI [Suspect]
     Active Substance: SELEXIPAG
     Dosage: 200 MCG, BID
     Route: 048
     Dates: start: 20170927

REACTIONS (58)
  - Cardiogenic shock [Not Recovered/Not Resolved]
  - Ammonia increased [Not Recovered/Not Resolved]
  - Somnolence [Unknown]
  - Treatment noncompliance [Unknown]
  - Chronic kidney disease [Recovered/Resolved]
  - Myocardial infarction [Not Recovered/Not Resolved]
  - Urinary tract infection [Unknown]
  - Pulmonary arterial hypertension [Unknown]
  - Chest pain [Recovered/Resolved]
  - Toxic encephalopathy [Not Recovered/Not Resolved]
  - Blood urea increased [Not Recovered/Not Resolved]
  - Bronchitis [Recovered/Resolved]
  - Cardiac failure congestive [Unknown]
  - Abdominal distension [Unknown]
  - Transaminases increased [Not Recovered/Not Resolved]
  - Sciatic nerve neuropathy [Recovered/Resolved]
  - White blood cell count decreased [Unknown]
  - Electrolyte imbalance [Unknown]
  - Acidosis [Not Recovered/Not Resolved]
  - Hypotension [Unknown]
  - Right ventricular failure [Unknown]
  - Diarrhoea [Unknown]
  - Anaemia [Not Recovered/Not Resolved]
  - Dyspnoea [Unknown]
  - Lethargy [Not Recovered/Not Resolved]
  - International normalised ratio increased [Not Recovered/Not Resolved]
  - Viral infection [Unknown]
  - Dehydration [Not Recovered/Not Resolved]
  - Hyponatraemia [Recovered/Resolved]
  - Troponin increased [Unknown]
  - Acute respiratory failure [Recovering/Resolving]
  - Hypokalaemia [Recovered/Resolved]
  - Chronic obstructive pulmonary disease [Unknown]
  - Diabetes mellitus [Unknown]
  - Glycosylated haemoglobin increased [Unknown]
  - Lactic acidosis [Unknown]
  - Hypercapnia [Unknown]
  - Nausea [Unknown]
  - Weight increased [Unknown]
  - Mental status changes [Not Recovered/Not Resolved]
  - Pneumonia [Not Recovered/Not Resolved]
  - Hypoglycaemia [Not Recovered/Not Resolved]
  - Tachycardia [Not Recovered/Not Resolved]
  - Right ventricular dysfunction [Unknown]
  - Hepatic failure [Not Recovered/Not Resolved]
  - Unresponsive to stimuli [Not Recovered/Not Resolved]
  - Myocardial ischaemia [Unknown]
  - Blood creatinine increased [Recovered/Resolved]
  - Pulmonary oedema [Unknown]
  - Leukocytosis [Unknown]
  - Pleural effusion [Unknown]
  - Oedema peripheral [Unknown]
  - Deep vein thrombosis [Not Recovered/Not Resolved]
  - Septic shock [Fatal]
  - Sepsis [Not Recovered/Not Resolved]
  - Hyporesponsive to stimuli [Not Recovered/Not Resolved]
  - Acute kidney injury [Recovered/Resolved]
  - Decubitus ulcer [Unknown]

NARRATIVE: CASE EVENT DATE: 20171219
